FAERS Safety Report 9285607 (Version 2)
Quarter: 2013Q2

REPORT INFORMATION
  Report Type: Spontaneous
  Country: DK (occurrence: None)
  Receive Date: 20130507
  Receipt Date: 20130521
  Transmission Date: 20140414
  Serious: Yes (Other)
  Sender: FDA-Public Use
  Company Number: 1695408

PATIENT
  Sex: Female

DRUGS (8)
  1. DOCETAXEL [Suspect]
     Indication: PRODUCT USED FOR UNKNOWN INDICATION
  2. PACLITAXEL [Suspect]
     Indication: PRODUCT USED FOR UNKNOWN INDICATION
  3. VINORELBINE TARTRATE [Suspect]
     Indication: PRODUCT USED FOR UNKNOWN INDICATION
  4. TRASTUZUMAB [Suspect]
     Indication: PRODUCT USED FOR UNKNOWN INDICATION
  5. CAPECITABINE [Suspect]
     Indication: PRODUCT USED FOR UNKNOWN INDICATION
  6. TAMOXIFEN [Suspect]
     Indication: PRODUCT USED FOR UNKNOWN INDICATION
  7. LAPATINIB [Suspect]
     Indication: PRODUCT USED FOR UNKNOWN INDICATION
  8. THERAPEUTIC RADIOPHARMACEUTICALS [Concomitant]

REACTIONS (4)
  - Neutropenia [None]
  - Disease progression [None]
  - Skin cancer [None]
  - Malignant neoplasm progression [None]
